FAERS Safety Report 19269618 (Version 3)
Quarter: 2021Q2

REPORT INFORMATION
  Report Type: Spontaneous
  Country: FR (occurrence: FR)
  Receive Date: 20210518
  Receipt Date: 20210526
  Transmission Date: 20210717
  Serious: Yes (Other)
  Sender: FDA-Public Use
  Company Number: FR-MYLANLABS-2021M1028326

PATIENT
  Age: 91 Year
  Sex: Male

DRUGS (1)
  1. ALLOPURINOL MYLAN [Suspect]
     Active Substance: ALLOPURINOL
     Indication: GOUT
     Dosage: 100 MILLIGRAM, QD
     Dates: start: 2017

REACTIONS (2)
  - Skin cancer [Unknown]
  - Rash macular [Unknown]

NARRATIVE: CASE EVENT DATE: 2017
